FAERS Safety Report 13277272 (Version 5)
Quarter: 2017Q4

REPORT INFORMATION
  Report Type: Report from Study
  Country: AT (occurrence: AT)
  Receive Date: 20170228
  Receipt Date: 20171130
  Transmission Date: 20180320
  Serious: Yes (Other)
  Sender: FDA-Public Use
  Company Number: AT-JNJFOC-20170223936

PATIENT
  Age: 60 Year
  Sex: Female

DRUGS (11)
  1. SIMPONI [Suspect]
     Active Substance: GOLIMUMAB
     Indication: RHEUMATOID ARTHRITIS
     Route: 058
     Dates: start: 2017
  2. THROMBO ASS [Concomitant]
     Active Substance: ASPIRIN
     Route: 048
  3. PROPAFENONE. [Concomitant]
     Active Substance: PROPAFENONE
     Route: 048
  4. SIMPONI [Suspect]
     Active Substance: GOLIMUMAB
     Indication: RHEUMATOID ARTHRITIS
     Route: 058
     Dates: start: 20161205
  5. LEFLUNOMIDE. [Concomitant]
     Active Substance: LEFLUNOMIDE
     Indication: RHEUMATOID ARTHRITIS
     Route: 048
     Dates: start: 20160920
  6. METHOTREXATE. [Concomitant]
     Active Substance: METHOTREXATE
     Indication: RHEUMATOID ARTHRITIS
     Route: 048
     Dates: start: 20160707, end: 20160920
  7. NOVOTHYRAL [Concomitant]
     Active Substance: LEVOTHYROXINE SODIUM\LIOTHYRONINE SODIUM
     Route: 048
  8. DIPROFORTE [Concomitant]
     Indication: PANNICULITIS
     Route: 003
     Dates: start: 20170203
  9. EUTHYROX [Concomitant]
     Active Substance: LEVOTHYROXINE SODIUM
     Route: 048
  10. PANTOPRAZOLE [Concomitant]
     Active Substance: PANTOPRAZOLE
     Indication: PROPHYLAXIS
     Route: 048
  11. XYZALL [Concomitant]
     Active Substance: LEVOCETIRIZINE DIHYDROCHLORIDE
     Indication: PANNICULITIS
     Route: 048
     Dates: start: 20170920

REACTIONS (1)
  - Panniculitis [Not Recovered/Not Resolved]

NARRATIVE: CASE EVENT DATE: 20170119
